FAERS Safety Report 10759593 (Version 3)
Quarter: 2015Q1

REPORT INFORMATION
  Report Type: Spontaneous
  Country: US (occurrence: US)
  Receive Date: 20150203
  Receipt Date: 20150204
  Transmission Date: 20150721
  Serious: Yes (Death, Other)
  Sender: FDA-Public Use
  Company Number: US-GLAXOSMITHKLINE-US2015GSK009468

PATIENT
  Age: 50 Year
  Sex: Female
  Weight: 62.59 kg

DRUGS (24)
  1. MOXIFLOXACIN [Concomitant]
     Active Substance: MOXIFLOXACIN
  2. ALEVE [Concomitant]
     Active Substance: NAPROXEN SODIUM
  3. FUROSEMIDE. [Concomitant]
     Active Substance: FUROSEMIDE
  4. IOPHEN C-NR [Concomitant]
  5. XELODA [Concomitant]
     Active Substance: CAPECITABINE
  6. VALSARTAN. [Concomitant]
     Active Substance: VALSARTAN
  7. ALBUTEROL SULFATE. [Concomitant]
     Active Substance: ALBUTEROL SULFATE
  8. ASPIRIN. [Concomitant]
     Active Substance: ASPIRIN
  9. ZANTAC [Concomitant]
     Active Substance: RANITIDINE HYDROCHLORIDE
  10. MORPHINE SULFATE. [Concomitant]
     Active Substance: MORPHINE SULFATE
  11. OXYCODONE HYDROCHLORIDE. [Concomitant]
     Active Substance: OXYCODONE HYDROCHLORIDE
  12. TRIAMTERENE HYDROCHLORIDE [Concomitant]
     Active Substance: HYDROCHLOROTHIAZIDE\TRIAMTERENE
  13. AZITHROMYCIN [Concomitant]
     Active Substance: AZITHROMYCIN ANHYDROUS
  14. PREDNISONE. [Concomitant]
     Active Substance: PREDNISONE
  15. ANASTROZOLE. [Concomitant]
     Active Substance: ANASTROZOLE
  16. ATORVASTATIN [Concomitant]
     Active Substance: ATORVASTATIN
  17. STOOL SOFTENER [Concomitant]
     Active Substance: DOCUSATE CALCIUM
  18. LORAZEPAM. [Concomitant]
     Active Substance: LORAZEPAM
  19. TESSALON [Concomitant]
     Active Substance: BENZONATATE
  20. CHERATUSSIN [Concomitant]
  21. CEFUROXIME. [Concomitant]
     Active Substance: CEFUROXIME
  22. CEPHALEXIN. [Concomitant]
     Active Substance: CEPHALEXIN
  23. ONDANSETRON [Concomitant]
     Active Substance: ONDANSETRON
  24. TYKERB [Suspect]
     Active Substance: LAPATINIB DITOSYLATE
     Indication: BREAST CANCER
     Dosage: 1250 MG, QD
     Route: 048
     Dates: start: 20150112

REACTIONS (2)
  - Death [Fatal]
  - Vomiting [Unknown]

NARRATIVE: CASE EVENT DATE: 20150112
